FAERS Safety Report 5644466-8 (Version None)
Quarter: 2008Q1

REPORT INFORMATION
  Report Type: 
  Country: None (occurrence: None)
  Receive Date: 20080229
  Receipt Date: 20070109
  Transmission Date: 20080703
  Serious: No
  Sender: FDA-Public Use
  Company Number: A0635036A

PATIENT
  Sex: Female

DRUGS (1)
  1. VALTREX [Suspect]
     Indication: GENITAL HERPES
     Route: 065
     Dates: start: 20050101

REACTIONS (3)
  - CERVICAL DYSPLASIA [None]
  - PAPILLOMA VIRAL INFECTION [None]
  - SMEAR CERVIX ABNORMAL [None]
